FAERS Safety Report 4433646-5 (Version None)
Quarter: 2004Q3

REPORT INFORMATION
  Report Type: 
  Country: None (occurrence: None)
  Receive Date: 20040824
  Receipt Date: 20040809
  Transmission Date: 20050211
  Serious: Yes (Hospitalization)
  Sender: FDA-Public Use
  Company Number: 2004-BP-06658BP

PATIENT
  Sex: 0

DRUGS (2)
  1. COMBIVENT [Suspect]
     Dosage: (SEE TEXT, 18/103MG/PUF), IH
     Route: 055
  2. DUONEB (COMBIVENT) [Concomitant]

REACTIONS (1)
  - CONDITION AGGRAVATED [None]
